FAERS Safety Report 13035299 (Version 1)
Quarter: 2016Q4

REPORT INFORMATION
  Report Type: Spontaneous
  Country: GB (occurrence: GB)
  Receive Date: 20161216
  Receipt Date: 20161216
  Transmission Date: 20170207
  Serious: Yes (Hospitalization)
  Sender: FDA-Public Use
  Company Number: GB-ASTRAZENECA-2016SF30796

PATIENT
  Age: 38 Year
  Sex: Male

DRUGS (3)
  1. SYMBICORT [Suspect]
     Active Substance: BUDESONIDE\FORMOTEROL FUMARATE DIHYDRATE
     Indication: ASTHMA
     Dosage: 200/6, TWO TO THREE TIMES DAILY, 2 DF
     Route: 055
     Dates: start: 20161114
  2. PREDNISOLONE. [Concomitant]
     Active Substance: PREDNISOLONE
  3. CLARITHROMYCIN. [Concomitant]
     Active Substance: CLARITHROMYCIN

REACTIONS (1)
  - Seizure [Recovered/Resolved]
